FAERS Safety Report 17207434 (Version 1)
Quarter: 2019Q4

REPORT INFORMATION
  Report Type: Spontaneous
  Country: US (occurrence: US)
  Receive Date: 20191227
  Receipt Date: 20191227
  Transmission Date: 20200122
  Serious: No
  Sender: FDA-Public Use
  Company Number: US-MYLANLABS-2019M1123298

PATIENT
  Sex: Female
  Weight: 68 kg

DRUGS (1)
  1. FROVATRIPTAN SUCCINATE TABLETS [Suspect]
     Active Substance: FROVATRIPTAN SUCCINATE
     Indication: MIGRAINE
     Dosage: 1 DOSAGE FORM, PRN
     Route: 048

REACTIONS (1)
  - Drug ineffective [Recovered/Resolved]
